FAERS Safety Report 7025748-4 (Version None)
Quarter: 2010Q4

REPORT INFORMATION
  Report Type: 
  Country: None (occurrence: None)
  Receive Date: 20101004
  Receipt Date: 20100922
  Transmission Date: 20110411
  Serious: Yes (Death, Hospitalization, Other)
  Sender: FDA-Public Use
  Company Number: US-BIOGENIDEC-2010BI005062

PATIENT
  Age: 75 Year
  Sex: Female

DRUGS (2)
  1. AVONEX [Suspect]
     Indication: MULTIPLE SCLEROSIS
     Route: 030
     Dates: start: 20000204
  2. AVONEX [Suspect]
     Route: 030
     Dates: end: 20091101

REACTIONS (2)
  - HAEMATOLOGICAL MALIGNANCY [None]
  - MULTIPLE MYELOMA [None]
